FAERS Safety Report 15751247 (Version 1)
Quarter: 2018Q4

REPORT INFORMATION
  Report Type: Spontaneous
  Country: US (occurrence: US)
  Receive Date: 20181221
  Receipt Date: 20181221
  Transmission Date: 20190205
  Serious: Yes (Hospitalization, Other)
  Sender: FDA-Public Use
  Company Number: US-TEVA-2018-US-988271

PATIENT
  Sex: Female

DRUGS (1)
  1. CLONAZEPAM ACTAVIS [Suspect]
     Active Substance: CLONAZEPAM
     Indication: INSOMNIA
     Dates: start: 2016

REACTIONS (9)
  - Drug ineffective [Unknown]
  - Product substitution issue [Unknown]
  - Palpitations [Unknown]
  - Panic attack [Unknown]
  - Insomnia [Unknown]
  - Migraine [Unknown]
  - Vision blurred [Unknown]
  - Suicidal ideation [Unknown]
  - Diarrhoea [Unknown]

NARRATIVE: CASE EVENT DATE: 201812
